FAERS Safety Report 15279594 (Version 4)
Quarter: 2019Q1

REPORT INFORMATION
  Report Type: Spontaneous
  Country: US (occurrence: US)
  Receive Date: 20180815
  Receipt Date: 20190111
  Transmission Date: 20190417
  Serious: No
  Sender: FDA-Public Use
  Company Number: US-PFIZER INC-2018328416

PATIENT
  Sex: Female
  Weight: 68.5 kg

DRUGS (2)
  1. SERTRALINE HCL [Suspect]
     Active Substance: SERTRALINE HYDROCHLORIDE
     Indication: ANXIETY
  2. SERTRALINE HCL [Suspect]
     Active Substance: SERTRALINE HYDROCHLORIDE
     Indication: DEPRESSION
     Dosage: 175 MG, 1X/DAY
     Route: 048

REACTIONS (6)
  - Drug ineffective [Unknown]
  - Drug hypersensitivity [Unknown]
  - Asthenia [Recovering/Resolving]
  - Confusional state [Recovering/Resolving]
  - Malaise [Unknown]
  - Feeling abnormal [Recovering/Resolving]

NARRATIVE: CASE EVENT DATE: 2013
